FAERS Safety Report 6752254-4 (Version None)
Quarter: 2010Q2

REPORT INFORMATION
  Report Type: 
  Country: None (occurrence: None)
  Receive Date: 20100601
  Receipt Date: 20100601
  Transmission Date: 20101027
  Serious: No
  Sender: FDA-Public Use
  Company Number: None

PATIENT
  Age: 49 Year
  Sex: Male
  Weight: 127.0072 kg

DRUGS (1)
  1. ZICAM SWABS MATRIXX [Suspect]

REACTIONS (2)
  - AGEUSIA [None]
  - ANOSMIA [None]
